FAERS Safety Report 5234105-2 (Version None)
Quarter: 2007Q1

REPORT INFORMATION
  Report Type: 
  Country: None (occurrence: None)
  Receive Date: 20070208
  Receipt Date: 20070206
  Transmission Date: 20070707
  Serious: Yes (Life-Threatening)
  Sender: FDA-Public Use
  Company Number: ES-SHR-ES-2007-004001

PATIENT
  Age: 83 Year
  Sex: Male

DRUGS (1)
  1. ULTRAVIST / CLAROGRAF [Suspect]
     Dosage: UNK, 1 DOSE
     Route: 042
     Dates: start: 20061124, end: 20061124

REACTIONS (1)
  - ANAPHYLACTIC SHOCK [None]
